FAERS Safety Report 20521121 (Version 3)
Quarter: 2022Q2

REPORT INFORMATION
  Report Type: Spontaneous
  Country: US (occurrence: US)
  Receive Date: 20220226
  Receipt Date: 20220429
  Transmission Date: 20220721
  Serious: No
  Sender: FDA-Public Use
  Company Number: US-SA-SAC20220221000892

PATIENT
  Age: 22 Year
  Sex: Female

DRUGS (1)
  1. DUPIXENT [Suspect]
     Active Substance: DUPILUMAB
     Indication: Dermatitis atopic
     Dosage: 300MG, QOW
     Route: 058
     Dates: start: 20190110

REACTIONS (5)
  - Ocular hyperaemia [Unknown]
  - Restlessness [Recovering/Resolving]
  - Eye irritation [Recovered/Resolved]
  - Eye pruritus [Recovering/Resolving]
  - Dry eye [Recovering/Resolving]
